FAERS Safety Report 9931540 (Version 1)
Quarter: 2014Q1

REPORT INFORMATION
  Report Type: Spontaneous
  Country: IN (occurrence: None)
  Receive Date: 20140224
  Receipt Date: 20140224
  Transmission Date: 20141002
  Serious: Yes (Other)
  Sender: FDA-Public Use
  Company Number: IMP_07472_2014

PATIENT
  Age: 48 Year
  Sex: Male

DRUGS (2)
  1. SODIUM VALPROATE (SODIUM VALPROATE) [Suspect]
     Indication: MANIA
     Dosage: (1500 MG, PER DAY [DOSES WERE INCREASED TO 1500 MG/DAY])
  2. RISPERIDONE [Concomitant]

REACTIONS (1)
  - Priapism [None]
